FAERS Safety Report 8021545-1 (Version None)
Quarter: 2012Q1

REPORT INFORMATION
  Report Type: 
  Country: None (occurrence: None)
  Receive Date: 20120104
  Receipt Date: 20111222
  Transmission Date: 20120608
  Serious: Yes (Hospitalization)
  Sender: FDA-Public Use
  Company Number: CA-UCBSA-045970

PATIENT
  Age: 64 Year
  Sex: Male
  Weight: 68.2 kg

DRUGS (17)
  1. CELEBREX [Concomitant]
     Indication: RHEUMATOID ARTHRITIS
     Route: 048
     Dates: start: 20110715
  2. GARLIC [Concomitant]
     Indication: MEDICAL DIET
     Dosage: DOSE PER INTAKE: 3 TAB
     Route: 048
     Dates: start: 20050101
  3. VITAMIN E [Concomitant]
     Indication: MEDICAL DIET
     Route: 048
     Dates: start: 20000101
  4. VITAMIN C [Concomitant]
     Indication: MEDICAL DIET
     Route: 048
     Dates: start: 20110117
  5. SYNTHROID [Concomitant]
     Indication: HYPOTHYROIDISM
     Route: 048
     Dates: start: 20080101
  6. METAMUCIL-2 [Concomitant]
     Indication: CONSTIPATION
     Dosage: DOSE PER INTAKE:2 TAB
     Route: 048
     Dates: start: 20080101
  7. CERTOLIZUMAB PEGOL [Suspect]
     Dosage: NO OF DOSES RECEIVED:3
     Route: 058
     Dates: start: 20110831, end: 20110927
  8. MULTI-VITAMINS [Concomitant]
     Indication: MEDICAL DIET
     Dosage: DOSE PER INTAKE: 1 TAB
     Route: 048
     Dates: start: 20040101
  9. CERTOLIZUMAB PEGOL [Suspect]
     Indication: RHEUMATOID ARTHRITIS
     Dosage: NO OF DOSES RECEIVED:1
     Route: 058
     Dates: start: 20111012, end: 20111025
  10. FOLIC ACID [Concomitant]
     Indication: ADVERSE DRUG REACTION
     Dosage: 5MG QS
     Route: 048
     Dates: start: 20100118
  11. METHOTREXATE [Concomitant]
     Indication: RHEUMATOID ARTHRITIS
     Dosage: 25MG QS
     Route: 058
     Dates: start: 20110530
  12. ATACAND [Concomitant]
     Indication: HYPERTENSION
     Dosage: 32/25; DOSE PER INTAKE: 1 TAB
     Route: 048
     Dates: start: 20110201
  13. ASAPHEN [Concomitant]
     Indication: PROPHYLAXIS
     Route: 048
     Dates: start: 20000101
  14. EMTEC-30 [Concomitant]
     Indication: ARTHRALGIA
     Dosage: DOS EPER INTAKE:1 TAB
     Route: 048
     Dates: start: 20110815
  15. CRESTOR [Concomitant]
     Indication: HYPERLIPIDAEMIA
     Route: 048
     Dates: start: 20070101
  16. LINSEED OIL [Concomitant]
     Indication: MEDICAL DIET
     Route: 048
     Dates: start: 20060101
  17. GLUCOSAMINE [Concomitant]
     Indication: MEDICAL DIET
     Route: 048
     Dates: start: 20040101

REACTIONS (1)
  - BACTERIAL INFECTION [None]
